FAERS Safety Report 8675032 (Version 2)
Quarter: 2012Q4

REPORT INFORMATION
  Report Type: 
  Country: ES (occurrence: ES)
  Receive Date: 20120720
  Receipt Date: 20120924
  Transmission Date: 20130627
  Serious: Yes (Hospitalization, Other)
  Sender: FDA-Public Use
  Company Number: ES-ELI_LILLY_AND_COMPANY-ES201207004519

PATIENT
  Age: 80 None
  Sex: Male
  Weight: 74 kg

DRUGS (13)
  1. FORSTEO [Suspect]
     Indication: OSTEOPOROSIS
     Dosage: 20 ug, qd
     Dates: start: 20100705
  2. BRAINAL [Concomitant]
     Indication: NERVOUS SYSTEM DISORDER
     Dosage: UNK, bid
     Route: 048
  3. PLAVIX [Concomitant]
     Indication: CEREBRAL INFARCTION
     Dosage: 75 mg, qd
     Route: 048
  4. DEPAKINE [Concomitant]
     Indication: EPILEPSY
     Dosage: 500 mg, bid
     Route: 048
     Dates: start: 201205
  5. FERROGRADUMET [Concomitant]
     Dosage: UNK, bid
     Route: 048
     Dates: start: 201205
  6. ACFOL [Concomitant]
     Dosage: UNK, bid
     Route: 048
     Dates: start: 201205
  7. SINGULAIR [Concomitant]
     Indication: CHRONIC OBSTRUCTIVE PULMONARY DISEASE
     Dosage: UNK, qd
     Route: 048
  8. CITALOPRAM [Concomitant]
     Indication: SLEEP DISORDER
     Dosage: 20 mg, qd
     Route: 048
  9. FLUMIL                             /00082801/ [Concomitant]
     Indication: CHRONIC OBSTRUCTIVE PULMONARY DISEASE
     Dosage: UNK, qd
     Route: 048
  10. SERETIDE [Concomitant]
     Indication: CHRONIC OBSTRUCTIVE PULMONARY DISEASE
     Dosage: UNK, bid
  11. SPIRIVA [Concomitant]
     Indication: CHRONIC OBSTRUCTIVE PULMONARY DISEASE
     Dosage: UNK
  12. ATROVENT [Concomitant]
     Indication: CHRONIC OBSTRUCTIVE PULMONARY DISEASE
     Dosage: UNK
  13. OXYGEN [Concomitant]

REACTIONS (6)
  - Epilepsy [Recovered/Resolved]
  - Laboratory test abnormal [Not Recovered/Not Resolved]
  - Haemoglobin decreased [Unknown]
  - Haematocrit decreased [Unknown]
  - Red blood cell count decreased [Unknown]
  - Aspartate aminotransferase increased [Unknown]
